FAERS Safety Report 13987914 (Version 3)
Quarter: 2018Q1

REPORT INFORMATION
  Report Type: Spontaneous
  Country: US (occurrence: US)
  Receive Date: 20170919
  Receipt Date: 20180102
  Transmission Date: 20180508
  Serious: Yes (Other)
  Sender: FDA-Public Use
  Company Number: US-PFIZER INC-2017401597

PATIENT
  Age: 48 Year
  Sex: Female
  Weight: 74.83 kg

DRUGS (2)
  1. MYCOPHENOLATE [Concomitant]
     Active Substance: MYCOPHENOLIC ACID
     Dosage: UNK
  2. XELJANZ [Suspect]
     Active Substance: TOFACITINIB CITRATE
     Indication: RHEUMATOID ARTHRITIS
     Dosage: 5 MG, 2X/DAY
     Route: 048
     Dates: start: 20170919

REACTIONS (6)
  - Drug ineffective [Unknown]
  - Epistaxis [Unknown]
  - Angina pectoris [Unknown]
  - Rash pruritic [Unknown]
  - Rash vesicular [Unknown]
  - Diarrhoea [Unknown]
